FAERS Safety Report 5968795-3 (Version None)
Quarter: 2008Q4

REPORT INFORMATION
  Report Type: 
  Country: None (occurrence: None)
  Receive Date: 20081125
  Receipt Date: 20081125
  Transmission Date: 20090506
  Serious: Yes (Other)
  Sender: FDA-Public Use
  Company Number: None

PATIENT
  Age: 63 Year
  Sex: Female
  Weight: 74.8435 kg

DRUGS (1)
  1. PROZAC [Suspect]
     Indication: DEPRESSION
     Dates: start: 20040101, end: 20080101

REACTIONS (1)
  - DYSKINESIA [None]
